FAERS Safety Report 5811788-7 (Version None)
Quarter: 2008Q3

REPORT INFORMATION
  Report Type: 
  Country: None (occurrence: None)
  Receive Date: 20080715
  Receipt Date: 20080715
  Transmission Date: 20090109
  Serious: Yes (Hospitalization, Other)
  Sender: FDA-Public Use
  Company Number: None

PATIENT
  Age: 34 Year
  Sex: Female
  Weight: 65.318 kg

DRUGS (2)
  1. YAZ [Suspect]
     Indication: POLYCYSTIC OVARIES
     Dosage: QD PO
     Route: 048
     Dates: start: 20080616, end: 20080626
  2. YAZ [Suspect]
     Indication: PREMENSTRUAL SYNDROME
     Dosage: QD PO
     Route: 048
     Dates: start: 20080616, end: 20080626

REACTIONS (15)
  - BREAST PAIN [None]
  - CRYING [None]
  - DEPRESSION [None]
  - DIZZINESS [None]
  - DRUG TOXICITY [None]
  - DYSPHAGIA [None]
  - DYSPHONIA [None]
  - HEADACHE [None]
  - INFLUENZA [None]
  - METRORRHAGIA [None]
  - MOOD SWINGS [None]
  - PALPITATIONS [None]
  - ROAD TRAFFIC ACCIDENT [None]
  - SUICIDAL IDEATION [None]
  - VISUAL IMPAIRMENT [None]
